FAERS Safety Report 23974368 (Version 1)
Quarter: 2024Q2

REPORT INFORMATION
  Report Type: Spontaneous
  Country: CA (occurrence: CA)
  Receive Date: 20240614
  Receipt Date: 20240614
  Transmission Date: 20240717
  Serious: No
  Sender: FDA-Public Use
  Company Number: CA-ALKEM LABORATORIES LIMITED-CA-ALKEM-2024-06334

PATIENT
  Age: 5 Decade
  Sex: Female

DRUGS (4)
  1. BREXPIPRAZOLE [Suspect]
     Active Substance: BREXPIPRAZOLE
     Indication: Delusional disorder, unspecified type
     Dosage: UNK
     Route: 065
  2. BREXPIPRAZOLE [Suspect]
     Active Substance: BREXPIPRAZOLE
     Dosage: 3 MILLIGRAM, QD (RESTARTED)
     Route: 065
  3. LURASIDONE [Suspect]
     Active Substance: LURASIDONE
     Indication: Delusional disorder, persecutory type
     Dosage: UNK
     Route: 065
  4. ZUCLOPENTHIXOL [Concomitant]
     Active Substance: ZUCLOPENTHIXOL
     Indication: Delusional disorder, persecutory type
     Dosage: 10 MILLIGRAM, QD (DAILY)
     Route: 065

REACTIONS (3)
  - Weight increased [Unknown]
  - Depressive symptom [Unknown]
  - Therapy partial responder [Unknown]
